FAERS Safety Report 7085968-X (Version None)
Quarter: 2010Q4

REPORT INFORMATION
  Report Type: 
  Country: None (occurrence: None)
  Receive Date: 20101008
  Receipt Date: 20100802
  Transmission Date: 20110411
  Serious: Yes (Other)
  Sender: FDA-Public Use
  Company Number: 2010SP042014

PATIENT
  Age: 51 Year
  Sex: Female

DRUGS (11)
  1. TEMODAR [Suspect]
     Indication: BRAIN NEOPLASM
     Dosage: 370 MG; PO, 370 MG; PO
     Route: 048
     Dates: start: 20100710, end: 20100715
  2. TEMODAR [Suspect]
     Indication: BRAIN NEOPLASM
     Dosage: 370 MG; PO, 370 MG; PO
     Route: 048
     Dates: start: 20100314
  3. AVASTIN [Concomitant]
  4. KEPPRA [Concomitant]
  5. LISINOPRIL [Concomitant]
  6. PAXIL [Concomitant]
  7. PROTONIX [Concomitant]
  8. AMBIEN [Concomitant]
  9. ONDANSETRON [Concomitant]
  10. BACTRIM [Concomitant]
  11. XANAX [Concomitant]

REACTIONS (1)
  - URTICARIA [None]
